FAERS Safety Report 4877250-3 (Version None)
Quarter: 2006Q1

REPORT INFORMATION
  Report Type: 
  Country: None (occurrence: None)
  Receive Date: 20060106
  Receipt Date: 20051228
  Transmission Date: 20060701
  Serious: Yes (Hospitalization, Other)
  Sender: FDA-Public Use
  Company Number: 2002JP006467

PATIENT
  Age: 30 Year
  Sex: Male
  Weight: 47 kg

DRUGS (14)
  1. PROTOPIC [Suspect]
     Indication: LICHEN PLANUS
     Dosage: 0.1 %, TOPICAL; 0.1% TOPICAL; 0.1%, TOPICAL
     Route: 061
     Dates: start: 20020117, end: 20021114
  2. PROTOPIC [Suspect]
     Indication: LICHEN PLANUS
     Dosage: 0.1 %, TOPICAL; 0.1% TOPICAL; 0.1%, TOPICAL
     Route: 061
     Dates: start: 20021115, end: 20021121
  3. PROTOPIC [Suspect]
     Indication: LICHEN PLANUS
     Dosage: 0.1 %, TOPICAL; 0.1% TOPICAL; 0.1%, TOPICAL
     Route: 061
     Dates: start: 20021209, end: 20030206
  4. VANCOMYCIN [Suspect]
     Dosage: 2 G, D, IV NOS; 1G UID/QD, IV NOS
     Route: 042
     Dates: start: 20021024, end: 20021115
  5. VANCOMYCIN [Suspect]
     Dosage: 2 G, D, IV NOS; 1G UID/QD, IV NOS
     Route: 042
     Dates: start: 20030116
  6. AMIKACIN SULFATE [Suspect]
     Dosage: 400  MG, D, IV NOS
     Route: 042
     Dates: start: 20021026, end: 20021101
  7. PREDNISOLONE [Suspect]
     Indication: AUTOIMMUNE HEPATITIS
     Dosage: 10 MG, UID/QD, ORAL; 20 MG UID/QD, IV NOS
     Dates: start: 20000101, end: 20000101
  8. PREDNISOLONE [Suspect]
     Indication: AUTOIMMUNE HEPATITIS
     Dosage: 10 MG, UID/QD, ORAL; 20 MG UID/QD, IV NOS
     Dates: start: 20030205, end: 20030306
  9. PREDNISOLONE [Suspect]
     Indication: AUTOIMMUNE HEPATITIS
     Dosage: 10 MG, UID/QD, ORAL; 20 MG UID/QD, IV NOS
     Dates: start: 20000801
  10. PREDNISOLONE [Suspect]
     Indication: AUTOIMMUNE HEPATITIS
     Dosage: 10 MG, UID/QD, ORAL; 20 MG UID/QD, IV NOS
     Dates: start: 20021224
  11. LANSOPRAZOLE [Suspect]
     Dosage: 30 MG, UID/QD, ORAL
     Route: 048
     Dates: start: 20030116, end: 20030206
  12. DIFLUCAN (FLUCONAZOLE) [Concomitant]
  13. SOLU-MEDROL [Concomitant]
  14. EUGLUCON TABLET [Concomitant]

REACTIONS (24)
  - AGRANULOCYTOSIS [None]
  - ANAEMIA HAEMOLYTIC AUTOIMMUNE [None]
  - APLASIA PURE RED CELL [None]
  - AUTOIMMUNE HEPATITIS [None]
  - CSF TEST ABNORMAL [None]
  - DISEASE RECURRENCE [None]
  - DRUG LEVEL DECREASED [None]
  - DUODENAL ULCER [None]
  - HAEMOLYTIC URAEMIC SYNDROME [None]
  - HEPATIC FIBROSIS [None]
  - HEPATITIS ACUTE [None]
  - LICHEN PLANUS [None]
  - LUNG INFECTION PSEUDOMONAL [None]
  - LYMPHOCYTE STIMULATION TEST POSITIVE [None]
  - MENINGITIS CRYPTOCOCCAL [None]
  - NEPHROPATHY [None]
  - ORAL MUCOSA EROSION [None]
  - PNEUMONIA [None]
  - PSEUDOMONAL SEPSIS [None]
  - RASH [None]
  - RENAL IMPAIRMENT [None]
  - SCAR [None]
  - SKIN ATROPHY [None]
  - STAPHYLOCOCCAL INFECTION [None]
